FAERS Safety Report 7821428 (Version 2)
Quarter: 2013Q3

REPORT INFORMATION
  Report Type: Spontaneous
  Country: US (occurrence: US)
  Receive Date: 20110222
  Receipt Date: 20130916
  Transmission Date: 20140515
  Serious: Yes (Other)
  Sender: FDA-Public Use
  Company Number: US-ROCHE-734210

PATIENT
  Age: 46 Year
  Sex: Female
  Weight: 69.9 kg

DRUGS (2)
  1. ACCUTANE [Suspect]
     Indication: PRODUCT USED FOR UNKNOWN INDICATION
     Route: 065
     Dates: start: 20020101, end: 20030101
  2. ACCUTANE [Suspect]
     Route: 048

REACTIONS (8)
  - Colitis ulcerative [Unknown]
  - Gastrointestinal injury [Unknown]
  - Inflammatory bowel disease [Unknown]
  - Intestinal haemorrhage [Unknown]
  - Depression [Unknown]
  - Irritable bowel syndrome [Unknown]
  - Headache [Unknown]
  - Lip dry [Unknown]
